FAERS Safety Report 9927733 (Version 1)
Quarter: 2014Q1

REPORT INFORMATION
  Report Type: Spontaneous
  Country: DE (occurrence: DE)
  Receive Date: 20140227
  Receipt Date: 20140227
  Transmission Date: 20141002
  Serious: Yes (Other)
  Sender: FDA-Public Use
  Company Number: DE-DRREDDYS-GER/GER/14/0038441

PATIENT
  Age: 36 Year
  Sex: Female
  Weight: 128 kg

DRUGS (6)
  1. METOPROLOL [Suspect]
     Indication: HYPERTENSION
     Route: 048
  2. BISOPROLOL [Concomitant]
     Indication: HYPERTENSION
     Route: 048
     Dates: start: 20120430, end: 20120605
  3. INSULIN [Concomitant]
     Indication: GESTATIONAL DIABETES
     Dosage: 8 IE/D
     Route: 058
     Dates: end: 20130205
  4. FOLIO [Concomitant]
     Indication: PROPHYLAXIS OF NEURAL TUBE DEFECT
     Route: 048
     Dates: end: 20130205
  5. DOPEGYT [Concomitant]
     Indication: HYPERTENSION
     Route: 048
  6. ASS 100 [Concomitant]
     Indication: THROMBOSIS PROPHYLAXIS
     Route: 048

REACTIONS (4)
  - Gestational diabetes [Unknown]
  - Obstructed labour [Unknown]
  - Caesarean section [Unknown]
  - Exposure during pregnancy [Unknown]
